FAERS Safety Report 9933075 (Version 1)
Quarter: 2014Q1

REPORT INFORMATION
  Report Type: Spontaneous
  Country: US (occurrence: US)
  Receive Date: 20140228
  Receipt Date: 20140228
  Transmission Date: 20141002
  Serious: No
  Sender: FDA-Public Use
  Company Number: US-GLAXOSMITHKLINE-A1047900A

PATIENT
  Age: 51 Year
  Sex: Female

DRUGS (9)
  1. LAMICTAL [Suspect]
     Indication: NEURALGIA
     Dosage: 200MG SIX TIMES PER DAY
     Route: 048
     Dates: start: 2005
  2. LAMOTRIGINE [Suspect]
     Indication: NEURALGIA
     Dosage: 200MG SIX TIMES PER DAY
     Route: 048
  3. LISINOPRIL [Concomitant]
  4. ZESTRIL [Concomitant]
  5. METOPROLOL [Concomitant]
  6. ALPRAZOLAM [Concomitant]
  7. HYDROCODONE [Concomitant]
  8. PRAVASTATIN [Concomitant]
  9. DIGOXIN [Concomitant]

REACTIONS (2)
  - Drug administration error [Unknown]
  - Expired drug administered [Unknown]
